FAERS Safety Report 4749471-1 (Version None)
Quarter: 2005Q3

REPORT INFORMATION
  Report Type: 
  Country: None (occurrence: None)
  Receive Date: 20050822
  Receipt Date: 20050510
  Transmission Date: 20060218
  Serious: No
  Sender: FDA-Public Use
  Company Number: JP-BOEHRINGER INGELHEIM PHARMACEUTICALS, INC.-2005-BP-08455NB

PATIENT
  Sex: Female

DRUGS (6)
  1. MICARDIS [Suspect]
     Indication: HYPERTENSION
     Route: 048
     Dates: start: 20041203, end: 20041218
  2. GASTER [Concomitant]
     Route: 048
     Dates: start: 20041129
  3. CEREKINON [Concomitant]
     Route: 048
     Dates: start: 20041129
  4. LENDORMIN [Concomitant]
     Route: 048
     Dates: start: 20041203
  5. LORAZEPAM [Concomitant]
     Route: 048
     Dates: start: 20041124
  6. GASCON [Concomitant]
     Route: 048
     Dates: start: 20041203

REACTIONS (3)
  - CONVULSION [None]
  - INCONTINENCE [None]
  - LOSS OF CONSCIOUSNESS [None]
